FAERS Safety Report 6882281-8 (Version None)
Quarter: 2010Q3

REPORT INFORMATION
  Report Type: 
  Country: None (occurrence: None)
  Receive Date: 20100729
  Receipt Date: 20100721
  Transmission Date: 20110219
  Serious: Yes (Hospitalization, Other)
  Sender: FDA-Public Use
  Company Number: US-BRISTOL-MYERS SQUIBB COMPANY-15204134

PATIENT
  Age: 66 Year
  Sex: Female
  Weight: 57 kg

DRUGS (2)
  1. SPRYCEL [Suspect]
     Indication: BREAST CANCER METASTATIC
     Dosage: 70MG QD
     Route: 042
     Dates: start: 20091124, end: 20100412
  2. BEVACIZUMAB [Suspect]
     Indication: BREAST CANCER METASTATIC
     Dosage: 5MG/KG Q 2 WKS
     Route: 042
     Dates: start: 20091124, end: 20100329

REACTIONS (3)
  - CARBON MONOXIDE DIFFUSING CAPACITY DECREASED [None]
  - INTERSTITIAL LUNG DISEASE [None]
  - PLEURAL EFFUSION [None]
